FAERS Safety Report 19965085 (Version 1)
Quarter: 2021Q4

REPORT INFORMATION
  Report Type: Spontaneous
  Country: EG (occurrence: EG)
  Receive Date: 20211018
  Receipt Date: 20211018
  Transmission Date: 20220303
  Serious: Yes (Other)
  Sender: FDA-Public Use
  Company Number: EG-NOVARTISPH-NVSC2021EG236968

PATIENT
  Age: 78 Year
  Sex: Female

DRUGS (2)
  1. ENTRESTO [Suspect]
     Active Substance: SACUBITRIL\VALSARTAN
     Indication: Cardiac failure
     Dosage: 0.5 DF, QD (100 MG)
     Route: 048
     Dates: start: 202010, end: 202011
  2. ENTRESTO [Suspect]
     Active Substance: SACUBITRIL\VALSARTAN
     Dosage: 0.5 DF, QD
     Route: 048
     Dates: start: 202012

REACTIONS (5)
  - Heart rate irregular [Recovered/Resolved]
  - Dyspnoea exertional [Recovered/Resolved]
  - Prescribed underdose [Recovered/Resolved]
  - Wrong technique in product usage process [Recovered/Resolved]
  - Wrong technique in product usage process [Not Recovered/Not Resolved]

NARRATIVE: CASE EVENT DATE: 20201001
